FAERS Safety Report 13435376 (Version 2)
Quarter: 2017Q2

REPORT INFORMATION
  Report Type: Report from Study
  Country: None (occurrence: CH)
  Receive Date: 20170412
  Receipt Date: 20170504
  Transmission Date: 20170830
  Serious: Yes (Hospitalization)
  Sender: FDA-Public Use
  Company Number: CH-ABBVIE-17P-151-1940347-00

PATIENT
  Sex: Male

DRUGS (2)
  1. DUODOPA [Suspect]
     Active Substance: CARBIDOPA\LEVODOPA
     Dosage: MD 0ML, CRD 5.2ML/H, CRN 3.9ML/H, ED 1ML, 24H THERAPY
     Route: 050
     Dates: start: 2017
  2. DUODOPA [Suspect]
     Active Substance: CARBIDOPA\LEVODOPA
     Indication: PARKINSON^S DISEASE
     Dosage: MD: 3.0ML, CONTINUOUS DAY: 4.9ML/H, CONTINUOUS NIGHT: 3.9ML/H, ED:1.0ML, 24 HR THERAPY
     Route: 050
     Dates: start: 20170228, end: 2017

REACTIONS (2)
  - Aggression [Unknown]
  - Derailment [Unknown]

NARRATIVE: CASE EVENT DATE: 2017
